FAERS Safety Report 8217368-0 (Version None)
Quarter: 2012Q1

REPORT INFORMATION
  Report Type: 
  Country: None (occurrence: None)
  Receive Date: 20120313
  Receipt Date: 20120301
  Transmission Date: 20120608
  Serious: Yes (Other)
  Sender: FDA-Public Use
  Company Number: 2012MA003109

PATIENT
  Age: 72 Year
  Sex: Female

DRUGS (3)
  1. PROPRANOLOL [Concomitant]
  2. NIFEDIPINE [Suspect]
     Indication: HYPERTENSION
     Dosage: PO
     Route: 048
  3. LEXILIUM [Concomitant]

REACTIONS (4)
  - ARRHYTHMIA [None]
  - PRODUCT QUALITY ISSUE [None]
  - TACHYCARDIA [None]
  - DRUG INEFFECTIVE [None]
